FAERS Safety Report 18123398 (Version 4)
Quarter: 2021Q1

REPORT INFORMATION
  Report Type: Report from Study
  Country: US (occurrence: US)
  Receive Date: 20200807
  Receipt Date: 20210102
  Transmission Date: 20210419
  Serious: Yes (Other)
  Sender: FDA-Public Use
  Company Number: NVSC2020US215740

PATIENT
  Sex: Female

DRUGS (2)
  1. COSENTYX [Suspect]
     Active Substance: SECUKINUMAB
     Dosage: UNK
     Route: 058
     Dates: start: 20200905
  2. COSENTYX [Suspect]
     Active Substance: SECUKINUMAB
     Indication: ANKYLOSING SPONDYLITIS
     Dosage: UNK
     Route: 058

REACTIONS (9)
  - Vomiting [Unknown]
  - Spinal pain [Unknown]
  - Large intestinal ulcer [Unknown]
  - Crohn^s disease [Unknown]
  - Back pain [Unknown]
  - Drug ineffective [Unknown]
  - Diarrhoea [Unknown]
  - Cough [Unknown]
  - Pain in extremity [Unknown]
